FAERS Safety Report 5163950-7 (Version None)
Quarter: 2006Q4

REPORT INFORMATION
  Report Type: 
  Country: None (occurrence: None)
  Receive Date: 20061204
  Receipt Date: 20061120
  Transmission Date: 20070319
  Serious: Yes (Hospitalization, Other)
  Sender: FDA-Public Use
  Company Number: US-ELI_LILLY_AND_COMPANY-US200611003841

PATIENT
  Age: 40 Year
  Sex: Female

DRUGS (7)
  1. PROZAC [Suspect]
     Indication: DEPRESSION
     Dosage: 20 MG, DAILY (1/D)
     Route: 048
     Dates: start: 19910101
  2. PROZAC [Suspect]
     Dosage: 70 MG, DAILY (1/D)
     Route: 048
  3. PROZAC [Suspect]
     Dosage: 80 MG, DAILY (1/D)
     Route: 048
  4. PRENATAL VITAMINS [Concomitant]
  5. TYLENOL                                 /USA/ [Concomitant]
     Dosage: UNK, AS NEEDED
  6. EXCEDRIN (MIGRAINE) [Concomitant]
  7. MAGNESIUM SULFATE [Concomitant]

REACTIONS (10)
  - CAESAREAN SECTION [None]
  - COWS MILK FREE DIET [None]
  - DRUG EXPOSURE DURING PREGNANCY [None]
  - DRUG EXPOSURE VIA BREAST MILK [None]
  - DRUG INEFFECTIVE [None]
  - GESTATIONAL DIABETES [None]
  - HEART RATE INCREASED [None]
  - POSTPARTUM DEPRESSION [None]
  - PREMATURE LABOUR [None]
  - PREMATURE SEPARATION OF PLACENTA [None]
